FAERS Safety Report 7098091-5 (Version None)
Quarter: 2010Q4

REPORT INFORMATION
  Report Type: 
  Country: None (occurrence: None)
  Receive Date: 20101112
  Receipt Date: 20101108
  Transmission Date: 20110411
  Serious: Yes (Other)
  Sender: FDA-Public Use
  Company Number: US-BRACCO-005261

PATIENT
  Age: 61 Year
  Sex: Female

DRUGS (2)
  1. VERAPAMIL [Concomitant]
  2. MULTIHANCE [Suspect]
     Indication: NUCLEAR MAGNETIC RESONANCE IMAGING
     Route: 042
     Dates: start: 20100810, end: 20100810

REACTIONS (4)
  - DYSPHAGIA [None]
  - DYSPHONIA [None]
  - PHARYNGEAL ERYTHEMA [None]
  - THROAT TIGHTNESS [None]
